FAERS Safety Report 10670796 (Version 1)
Quarter: 2014Q4

REPORT INFORMATION
  Report Type: Spontaneous
  Country: FR (occurrence: None)
  Receive Date: 20141219
  Receipt Date: 20141219
  Transmission Date: 20150529
  Serious: Yes (Disabling)
  Sender: FDA-Public Use
  Company Number: COL_18730_2014

PATIENT
  Sex: Female

DRUGS (1)
  1. COLGATE MAX WHITE WITH MINI BRIGHT STRIPS CRYSTAL MINT [Suspect]
     Active Substance: SODIUM FLUORIDE
     Indication: PRODUCT USED FOR UNKNOWN INDICATION
     Dosage: A PEA SIZED
     Route: 048

REACTIONS (4)
  - Noninfective gingivitis [None]
  - Oral pain [None]
  - Feeding disorder [None]
  - Fluid intake reduced [None]
